FAERS Safety Report 8584032-8 (Version None)
Quarter: 2012Q3

REPORT INFORMATION
  Report Type: 
  Country: None (occurrence: None)
  Receive Date: 20120810
  Receipt Date: 20120726
  Transmission Date: 20120928
  Serious: Yes (Hospitalization, Other)
  Sender: FDA-Public Use
  Company Number: US-009507513-1207USA011466

PATIENT

DRUGS (9)
  1. ATIVAN [Concomitant]
  2. PEGASYS [Suspect]
     Route: 058
  3. ACCOLATE [Concomitant]
  4. VICTRELIS [Suspect]
     Dosage: 4 DF, TID
  5. LEXAPRO [Concomitant]
  6. PROAIR (ALBUTEROL SULFATE) [Concomitant]
  7. FLUTICASONE PROPIONATE [Concomitant]
  8. COPEGUS [Suspect]
  9. PROCARDIA XL [Concomitant]

REACTIONS (19)
  - OROPHARYNGEAL PAIN [None]
  - WEIGHT DECREASED [None]
  - PNEUMONIA [None]
  - PANCYTOPENIA [None]
  - BACK PAIN [None]
  - SENSORY DISTURBANCE [None]
  - RASH [None]
  - MIDDLE EAR EFFUSION [None]
  - ANAEMIA [None]
  - PLATELET COUNT DECREASED [None]
  - FATIGUE [None]
  - WHITE BLOOD CELL COUNT DECREASED [None]
  - TINNITUS [None]
  - CHAPPED LIPS [None]
  - RED BLOOD CELL COUNT DECREASED [None]
  - DYSPHAGIA [None]
  - SINUSITIS [None]
  - LIP ULCERATION [None]
  - STOMATITIS [None]
